FAERS Safety Report 20654145 (Version 2)
Quarter: 2022Q2

REPORT INFORMATION
  Report Type: Report from Study
  Country: US (occurrence: US)
  Receive Date: 20220330
  Receipt Date: 20220401
  Transmission Date: 20220721
  Serious: Yes (Hospitalization)
  Sender: FDA-Public Use
  Company Number: US-BRISTOL-MYERS SQUIBB COMPANY-2022-012577

PATIENT
  Age: 63 Year
  Sex: Female
  Weight: 69.399 kg

DRUGS (1)
  1. REVLIMID [Suspect]
     Active Substance: LENALIDOMIDE
     Indication: Osteoarthritis
     Dosage: 10 MG CAPSULE-28/BTL, DAILY BY MOUTH 21 OF 28 DAYS.
     Route: 048
     Dates: start: 20220221

REACTIONS (3)
  - Muscle spasms [Unknown]
  - Off label use [Unknown]
  - Illness [Unknown]
